FAERS Safety Report 6393042-0 (Version None)
Quarter: 2009Q4

REPORT INFORMATION
  Report Type: 
  Country: None (occurrence: None)
  Receive Date: 20091008
  Receipt Date: 20090930
  Transmission Date: 20100525
  Serious: Yes (Death, Hospitalization)
  Sender: FDA-Public Use
  Company Number: ES-CELGENEUS-144-21880-09091421

PATIENT
  Sex: Female

DRUGS (4)
  1. REVLIMID [Suspect]
     Indication: MULTIPLE MYELOMA
     Route: 048
     Dates: start: 20090801, end: 20090901
  2. REVLIMID [Suspect]
     Route: 048
     Dates: start: 20090901, end: 20090901
  3. REVLIMID [Suspect]
     Route: 048
     Dates: start: 20090901, end: 20090901
  4. TAZOCEL [Suspect]
     Route: 065
     Dates: start: 20090901, end: 20090901

REACTIONS (2)
  - DEATH [None]
  - STEVENS-JOHNSON SYNDROME [None]
